FAERS Safety Report 26178499 (Version 1)
Quarter: 2025Q4

REPORT INFORMATION
  Report Type: Spontaneous
  Country: AR (occurrence: AR)
  Receive Date: 20251219
  Receipt Date: 20251219
  Transmission Date: 20260117
  Serious: Yes (Other)
  Sender: ACCORD
  Company Number: AR-Accord-519003

PATIENT
  Age: 38 Year
  Sex: Male

DRUGS (5)
  1. ETOPOSIDE [Suspect]
     Active Substance: ETOPOSIDE
     Indication: Desmoplastic small round cell tumour
  2. VINCRISTINE [Suspect]
     Active Substance: VINCRISTINE
     Indication: Desmoplastic small round cell tumour
     Dosage: 3 + 4 ADDITIONAL CYCLES
  3. DOXORUBICIN [Suspect]
     Active Substance: DOXORUBICIN
     Indication: Desmoplastic small round cell tumour
     Dosage: 3 + 4 ADDITIONAL CYCLES (REACHING A TOTAL DOXORUBICIN DOSE OF 450 MG/M2)
  4. CYCLOPHOSPHAMIDE [Suspect]
     Active Substance: CYCLOPHOSPHAMIDE
     Indication: Desmoplastic small round cell tumour
     Dosage: 3 + 4 ADDITIONAL CYCLES
  5. IFOSFAMIDE [Suspect]
     Active Substance: IFOSFAMIDE
     Indication: Desmoplastic small round cell tumour

REACTIONS (4)
  - Febrile neutropenia [Unknown]
  - Urosepsis [Unknown]
  - Thrombocytopenia [Unknown]
  - Blood creatinine increased [Unknown]
